FAERS Safety Report 4699547-2 (Version None)
Quarter: 2005Q2

REPORT INFORMATION
  Report Type: 
  Country: None (occurrence: None)
  Receive Date: 20050623
  Receipt Date: 20050614
  Transmission Date: 20051028
  Serious: Yes (Hospitalization, Other)
  Sender: FDA-Public Use
  Company Number: FRWYE743014JUN05

PATIENT
  Age: 35 Year
  Sex: Female

DRUGS (4)
  1. TAZOCILLINE (PIPERACILLIN / TAZOBACTAM, INJECTION) [Suspect]
     Indication: ENDOCARDITIS BACTERIAL
     Dosage: 4 G 3X PER 1 DAY, INTRAVENOUS
     Route: 042
     Dates: start: 20050419, end: 20050509
  2. CIPROFLAXACIN [Concomitant]
     Indication: ENDOCARDITIS BACTERIAL
     Dosage: 750 MG 2X PER 1 DAY,ORAL
     Route: 048
     Dates: start: 20050419, end: 20050509
  3. PREVISCAN (FLUINDIONE) [Concomitant]
  4. OMEPRAZOLE [Concomitant]

REACTIONS (3)
  - AGRANULOCYTOSIS [None]
  - ALVEOLITIS ALLERGIC [None]
  - ANAEMIA [None]
